FAERS Safety Report 6720390-4 (Version None)
Quarter: 2010Q2

REPORT INFORMATION
  Report Type: 
  Country: None (occurrence: None)
  Receive Date: 20100511
  Receipt Date: 20100427
  Transmission Date: 20101027
  Serious: Yes (Death, Other)
  Sender: FDA-Public Use
  Company Number: GB-PFIZER INC-2010052012

PATIENT
  Age: 23 Year
  Sex: Female
  Weight: 50 kg

DRUGS (4)
  1. SILDENAFIL CITRATE [Suspect]
     Indication: PULMONARY ARTERIAL HYPERTENSION
     Dosage: 25 MG, 3X/DAY
  2. ILOPROST [Suspect]
     Indication: PULMONARY ARTERIAL HYPERTENSION
     Route: 055
  3. ILOPROST [Suspect]
     Route: 042
  4. HEPARIN [Concomitant]
     Indication: PROPHYLAXIS

REACTIONS (2)
  - DEATH [None]
  - SYNCOPE [None]
